FAERS Safety Report 7727210-X (Version None)
Quarter: 2011Q3

REPORT INFORMATION
  Report Type: 
  Country: None (occurrence: None)
  Receive Date: 20110902
  Receipt Date: 20110822
  Transmission Date: 20111222
  Serious: Yes (Other)
  Sender: FDA-Public Use
  Company Number: US-BAYER-2011-076306

PATIENT
  Age: 33 Year
  Sex: Male

DRUGS (1)
  1. MAGNEVIST [Suspect]
     Indication: NUCLEAR MAGNETIC RESONANCE IMAGING BRAIN
     Dosage: 20 ML, UNK
     Route: 042
     Dates: start: 20110822, end: 20110822

REACTIONS (4)
  - DYSPNOEA [None]
  - CHEST PAIN [None]
  - ERYTHEMA [None]
  - THROAT TIGHTNESS [None]
